FAERS Safety Report 7662994-0 (Version None)
Quarter: 2011Q3

REPORT INFORMATION
  Report Type: 
  Country: None (occurrence: None)
  Receive Date: 20110805
  Receipt Date: 20100805
  Transmission Date: 20111222
  Serious: No
  Sender: FDA-Public Use
  Company Number: US-ABBOTT-10P-163-0662443-00

PATIENT
  Sex: Female
  Weight: 77.18 kg

DRUGS (3)
  1. NIASPAN [Suspect]
     Indication: PRODUCT USED FOR UNKNOWN INDICATION
     Route: 048
     Dates: start: 20100701
  2. CLOLEST-OFF [Concomitant]
     Indication: SUPPLEMENTATION THERAPY
     Route: 048
     Dates: start: 20100501
  3. NIASPAN [Suspect]
     Route: 048
     Dates: start: 20100601, end: 20100701

REACTIONS (1)
  - MYALGIA [None]
